FAERS Safety Report 19477092 (Version 1)
Quarter: 2021Q2

REPORT INFORMATION
  Report Type: Spontaneous
  Country: US (occurrence: US)
  Receive Date: 20210629
  Receipt Date: 20210629
  Transmission Date: 20210717
  Serious: Yes (Other)
  Sender: FDA-Public Use
  Company Number: None

PATIENT
  Age: 27 Year
  Sex: Female

DRUGS (2)
  1. BUPIVACAINE 0.125% [Suspect]
     Active Substance: BUPIVACAINE
  2. FENTANYL 2 MCG/ML [Suspect]
     Active Substance: FENTANYL

REACTIONS (2)
  - COVID-19 [None]
  - Horner^s syndrome [None]

NARRATIVE: CASE EVENT DATE: 20210409
